FAERS Safety Report 7522941-9 (Version None)
Quarter: 2011Q2

REPORT INFORMATION
  Report Type: 
  Country: None (occurrence: None)
  Receive Date: 20110603
  Receipt Date: 20110523
  Transmission Date: 20111010
  Serious: Yes (Hospitalization)
  Sender: FDA-Public Use
  Company Number: US-JNJFOC-20110510509

PATIENT
  Sex: Female
  Weight: 56.7 kg

DRUGS (4)
  1. AMITRIPTYLINE HCL [Concomitant]
     Indication: DEPRESSION
  2. REMICADE [Suspect]
     Indication: CROHN'S DISEASE
     Route: 042
     Dates: end: 20090101
  3. REMICADE [Suspect]
     Indication: RHEUMATOID ARTHRITIS
     Route: 042
     Dates: end: 20090101
  4. AMITRIPTYLINE HCL [Concomitant]
     Indication: ANXIETY

REACTIONS (3)
  - MALAISE [None]
  - DRUG INEFFECTIVE [None]
  - PYREXIA [None]
